FAERS Safety Report 8799933 (Version 1)
Quarter: 2012Q4

REPORT INFORMATION
  Report Type: Spontaneous
  Country: JP (occurrence: None)
  Receive Date: 20120917
  Receipt Date: 20120917
  Transmission Date: 20130627
  Serious: Yes (Death)
  Sender: FDA-Public Use
  Company Number: JP-2012-16241

PATIENT

DRUGS (1)
  1. SAMSCA [Suspect]
     Route: 048

REACTIONS (1)
  - Death [None]
